FAERS Safety Report 4455782-X (Version None)
Quarter: 2004Q3

REPORT INFORMATION
  Report Type: 
  Country: None (occurrence: None)
  Receive Date: 20040920
  Receipt Date: 20040908
  Transmission Date: 20050211
  Serious: Yes (Other)
  Sender: FDA-Public Use
  Company Number: 2004064240

PATIENT
  Age: 62 Year
  Sex: Male
  Weight: 72.5755 kg

DRUGS (6)
  1. BENADRYL [Suspect]
     Indication: PRURITUS
     Dosage: 1 KAPSEAL QD, ORAL
     Route: 048
     Dates: start: 20040801
  2. ANTIHYPERTENSIVES (ANTIHYPERTENSIVES) [Suspect]
     Indication: HYPERTENSION
  3. LANSOPRAZOLE [Suspect]
     Indication: GASTROOESOPHAGEAL REFLUX DISEASE
     Dosage: 30 MG QD, ORAL
     Route: 048
  4. ATORVASTATIN (ATORVASTATIN) [Concomitant]
  5. VITAMINS NOS (VITAMINS NOS) [Concomitant]
  6. LOTREL [Concomitant]

REACTIONS (1)
  - BLOOD PRESSURE INCREASED [None]
